FAERS Safety Report 4465271-4 (Version None)
Quarter: 2004Q4

REPORT INFORMATION
  Report Type: 
  Country: None (occurrence: None)
  Receive Date: 20041004
  Receipt Date: 20040929
  Transmission Date: 20050328
  Serious: Yes (Other)
  Sender: FDA-Public Use
  Company Number: US-JNJFOC-20040909895

PATIENT
  Sex: Female
  Weight: 49.9 kg

DRUGS (2)
  1. REMICADE [Suspect]
     Dosage: FOR THE PAST 3 YEARS
     Route: 042
  2. REMICADE [Suspect]
     Indication: CROHN'S DISEASE
     Route: 042

REACTIONS (4)
  - ANAL HAEMORRHAGE [None]
  - CONDITION AGGRAVATED [None]
  - LOCALISED OSTEOARTHRITIS [None]
  - NEUROPATHY PERIPHERAL [None]
